FAERS Safety Report 18164874 (Version 1)
Quarter: 2020Q3

REPORT INFORMATION
  Report Type: Spontaneous
  Country: US (occurrence: US)
  Receive Date: 20200818
  Receipt Date: 20200818
  Transmission Date: 20201103
  Serious: Yes (Life-Threatening, Congenital Anomaly, Other)
  Sender: FDA-Public Use
  Company Number: US-SLATE RUN PHARMACEUTICALS-20US000259

PATIENT

DRUGS (6)
  1. AZITHROMYCIN USP [Suspect]
     Active Substance: AZITHROMYCIN
     Indication: MATERNAL EXPOSURE TIMING UNSPECIFIED
     Route: 064
  2. OXYGEN. [Concomitant]
     Active Substance: OXYGEN
     Indication: MATERNAL EXPOSURE TIMING UNSPECIFIED
     Dosage: 40 LITRE
     Route: 064
  3. FUROSEMIDE. [Concomitant]
     Active Substance: FUROSEMIDE
     Indication: MATERNAL EXPOSURE TIMING UNSPECIFIED
     Dosage: 40 MILLIGRAM
     Route: 064
  4. DEXAMETHASONE. [Concomitant]
     Active Substance: DEXAMETHASONE
     Indication: MATERNAL EXPOSURE TIMING UNSPECIFIED
     Route: 064
  5. CEFTRIAXONE. [Concomitant]
     Active Substance: CEFTRIAXONE
     Indication: MATERNAL EXPOSURE TIMING UNSPECIFIED
     Route: 064
  6. OXYGEN. [Concomitant]
     Active Substance: OXYGEN
     Dosage: 3 LITRE/MIN
     Route: 064

REACTIONS (6)
  - Limb malformation [Unknown]
  - Foetal exposure during pregnancy [Unknown]
  - Neonatal respiratory failure [Recovering/Resolving]
  - Premature baby [Unknown]
  - Apgar score low [Unknown]
  - Bradycardia neonatal [Unknown]
